FAERS Safety Report 14092253 (Version 1)
Quarter: 2017Q4

REPORT INFORMATION
  Report Type: Spontaneous
  Country: US (occurrence: US)
  Receive Date: 20171014
  Receipt Date: 20171014
  Transmission Date: 20180321
  Serious: Yes (Other)
  Sender: FDA-Public Use
  Company Number: None

PATIENT
  Age: 25 Year
  Sex: Female
  Weight: 85.5 kg

DRUGS (2)
  1. CIPROFLOXACIN. [Suspect]
     Active Substance: CIPROFLOXACIN
     Indication: URINARY TRACT INFECTION
     Dosage: ?          QUANTITY:1 TABLET(S);?
     Route: 048
     Dates: start: 20171013, end: 20171014
  2. LOW DOSE NALTREXONE [Concomitant]
     Active Substance: NALTREXONE

REACTIONS (5)
  - Myalgia [None]
  - Movement disorder [None]
  - Tendon discomfort [None]
  - Arthralgia [None]
  - Muscle tightness [None]

NARRATIVE: CASE EVENT DATE: 20171013
